FAERS Safety Report 12639812 (Version 1)
Quarter: 2016Q3

REPORT INFORMATION
  Report Type: Spontaneous
  Country: US (occurrence: None)
  Receive Date: 20160809
  Receipt Date: 20160809
  Transmission Date: 20161109
  Serious: No
  Sender: FDA-Public Use
  Company Number: None

PATIENT
  Age: 71 Year
  Sex: Female
  Weight: 98.43 kg

DRUGS (12)
  1. LASIX [Concomitant]
     Active Substance: FUROSEMIDE
  2. VITAMIN B12 [Concomitant]
     Active Substance: CYANOCOBALAMIN
  3. CINNAMON CAPSULES [Concomitant]
  4. VITAMIN D3 [Concomitant]
     Active Substance: CHOLECALCIFEROL
  5. SYNTHROID [Concomitant]
     Active Substance: LEVOTHYROXINE SODIUM
  6. TYLENOL [Concomitant]
     Active Substance: ACETAMINOPHEN
  7. ELIQUIS [Concomitant]
     Active Substance: APIXABAN
  8. ELIQUIS [Suspect]
     Active Substance: APIXABAN
  9. TENORMIN [Concomitant]
     Active Substance: ATENOLOL
  10. K-DUR [Concomitant]
     Active Substance: POTASSIUM CHLORIDE
  11. PRENATAL VITAMINS [Concomitant]
     Active Substance: VITAMINS
  12. TYLENOL #4 [Concomitant]

REACTIONS (15)
  - Musculoskeletal stiffness [None]
  - Pain [None]
  - Hypoaesthesia [None]
  - Tendon disorder [None]
  - Nail disorder [None]
  - Pain in extremity [None]
  - Gait disturbance [None]
  - Joint stiffness [None]
  - Dysstasia [None]
  - Muscular weakness [None]
  - Functional gastrointestinal disorder [None]
  - Paraesthesia [None]
  - Abdominal pain upper [None]
  - Headache [None]
  - Ligament disorder [None]

NARRATIVE: CASE EVENT DATE: 20160501
